FAERS Safety Report 23023393 (Version 1)
Quarter: 2023Q4

REPORT INFORMATION
  Report Type: Report from Study
  Country: US (occurrence: US)
  Receive Date: 20231003
  Receipt Date: 20231003
  Transmission Date: 20240110
  Serious: Yes (Hospitalization, Other)
  Sender: FDA-Public Use
  Company Number: US-TAKEDA-2023TUS093936

PATIENT
  Age: 53 Year
  Sex: Female
  Weight: 56 kg

DRUGS (2)
  1. PONATINIB [Suspect]
     Active Substance: PONATINIB
     Indication: Chronic myeloid leukaemia
     Dosage: 15 MILLIGRAM, QD
     Route: 065
     Dates: start: 20230506
  2. PONATINIB [Suspect]
     Active Substance: PONATINIB
     Indication: Acute myeloid leukaemia
     Dosage: 30 MILLIGRAM, QD
     Route: 065
     Dates: start: 202306

REACTIONS (7)
  - Blast crisis in myelogenous leukaemia [Unknown]
  - Neutropenia [Unknown]
  - Sepsis [Unknown]
  - Toxicity to various agents [Unknown]
  - Immune system disorder [Unknown]
  - Full blood count decreased [Unknown]
  - Rash [Unknown]

NARRATIVE: CASE EVENT DATE: 20230701
